FAERS Safety Report 17716921 (Version 2)
Quarter: 2020Q2

REPORT INFORMATION
  Report Type: Spontaneous
  Country: US (occurrence: US)
  Receive Date: 20200428
  Receipt Date: 20200508
  Transmission Date: 20200714
  Serious: Yes (Other)
  Sender: FDA-Public Use
  Company Number: US-SA-2020SA107153

PATIENT
  Age: 54 Year
  Sex: Female
  Weight: 81.63 kg

DRUGS (13)
  1. TAXOTERE [Suspect]
     Active Substance: DOCETAXEL
     Dosage: 145 MG, Q3W
     Route: 042
     Dates: start: 20090909, end: 20090909
  2. ESTER C [ASCORBIC ACID] [Concomitant]
     Active Substance: ASCORBIC ACID
     Dosage: UNK
     Dates: start: 200902, end: 200912
  3. PROCHLORPERAZINE. [Concomitant]
     Active Substance: PROCHLORPERAZINE
     Dosage: UNK
     Dates: start: 200902, end: 200912
  4. RAMIPRIL. [Concomitant]
     Active Substance: RAMIPRIL
     Dosage: UNK
     Dates: start: 200902, end: 200912
  5. ADRIAMYCIN [Concomitant]
     Active Substance: DOXORUBICIN HYDROCHLORIDE
     Indication: BREAST CANCER FEMALE
  6. PROTONIX [Concomitant]
     Active Substance: PANTOPRAZOLE SODIUM
     Dosage: UNK
     Dates: start: 200902, end: 200912
  7. TAXOTERE [Suspect]
     Active Substance: DOCETAXEL
     Indication: BREAST CANCER FEMALE
     Dosage: 145 MG, Q3W
     Route: 042
     Dates: start: 20090526, end: 20090526
  8. BACTRIM [Concomitant]
     Active Substance: SULFAMETHOXAZOLE\TRIMETHOPRIM
     Dosage: UNK
     Dates: start: 200902, end: 200912
  9. DEXAMETHASONE. [Concomitant]
     Active Substance: DEXAMETHASONE
     Dosage: UNK
     Dates: start: 200902, end: 200912
  10. ACIDOPHILUS [Concomitant]
     Active Substance: LACTOBACILLUS ACIDOPHILUS
     Dosage: UNK
     Dates: start: 200902, end: 200912
  11. NORVASC [Concomitant]
     Active Substance: AMLODIPINE BESYLATE
     Dosage: UNK
     Dates: start: 200902, end: 200912
  12. VITAMIN B-6 [Concomitant]
     Active Substance: PYRIDOXINE
     Dosage: UNK
     Dates: start: 200902, end: 200912
  13. NEOSAR [Concomitant]
     Active Substance: CYCLOPHOSPHAMIDE
     Indication: BREAST CANCER FEMALE
     Dosage: UNK

REACTIONS (1)
  - Alopecia [Recovering/Resolving]

NARRATIVE: CASE EVENT DATE: 200906
